FAERS Safety Report 17032431 (Version 1)
Quarter: 2019Q4

REPORT INFORMATION
  Report Type: Spontaneous
  Country: FR (occurrence: FR)
  Receive Date: 20191114
  Receipt Date: 20191114
  Transmission Date: 20200122
  Serious: Yes (Life-Threatening)
  Sender: FDA-Public Use
  Company Number: FR-MYLANLABS-2019M1109575

PATIENT
  Age: 68 Year
  Sex: Female
  Weight: 56 kg

DRUGS (9)
  1. ACTISKENAN [Concomitant]
     Active Substance: MORPHINE SULFATE
     Dosage: UNK
  2. REVLIMID [Suspect]
     Active Substance: LENALIDOMIDE
     Indication: PLASMA CELL MYELOMA
     Dosage: 5 MILLIGRAM, QD
     Route: 048
     Dates: start: 20170919, end: 201903
  3. VELCADE [Suspect]
     Active Substance: BORTEZOMIB
     Indication: PLASMA CELL MYELOMA
     Dosage: UNK
     Route: 042
     Dates: start: 20170919, end: 2018
  4. DEXAMETHASONE. [Suspect]
     Active Substance: DEXAMETHASONE
     Indication: PLASMA CELL MYELOMA
     Dosage: UNK
     Route: 042
     Dates: start: 20170919, end: 2018
  5. ALKERAN [Suspect]
     Active Substance: MELPHALAN
     Indication: TRANSPLANT
     Dosage: 200 MILLIGRAM/SQ. METER, QD
     Route: 042
     Dates: start: 20171226, end: 20171227
  6. AMOXICILLINE                       /00249601/ [Concomitant]
     Active Substance: AMOXICILLIN
     Dosage: UNK
  7. KARDEGIC [Concomitant]
     Active Substance: ASPIRIN DL-LYSINE
     Dosage: UNK
  8. SKENAN [Concomitant]
     Active Substance: MORPHINE SULFATE
     Dosage: UNK
  9. VALACICLOVIR [Concomitant]
     Active Substance: VALACYCLOVIR HYDROCHLORIDE
     Dosage: UNK

REACTIONS (1)
  - Ovarian cancer [Not Recovered/Not Resolved]

NARRATIVE: CASE EVENT DATE: 201901
